FAERS Safety Report 8014202-9 (Version None)
Quarter: 2011Q4

REPORT INFORMATION
  Report Type: 
  Country: None (occurrence: None)
  Receive Date: 20111229
  Receipt Date: 20111221
  Transmission Date: 20120403
  Serious: Yes (Hospitalization)
  Sender: FDA-Public Use
  Company Number: US-GLAXOSMITHKLINE-A0915674A

PATIENT
  Age: 65 Year
  Sex: Male
  Weight: 115 kg

DRUGS (7)
  1. HYDROCHLOROTHIAZIDE [Concomitant]
  2. GEMFIBROZIL [Concomitant]
  3. ROSUVASTATIN [Concomitant]
  4. AVANDIA [Suspect]
     Indication: DIABETES MELLITUS
     Dosage: 4MG PER DAY
     Route: 048
     Dates: start: 20060915
  5. GLYBURIDE [Concomitant]
  6. METOPROLOL SUCCINATE [Concomitant]
  7. METFORMIN HCL [Concomitant]

REACTIONS (1)
  - MYOCARDIAL INFARCTION [None]
